FAERS Safety Report 11499823 (Version 1)
Quarter: 2015Q3

REPORT INFORMATION
  Report Type: Spontaneous
  Country: IN (occurrence: IN)
  Receive Date: 20150914
  Receipt Date: 20150914
  Transmission Date: 20151125
  Serious: Yes (Life-Threatening, Hospitalization)
  Sender: FDA-Public Use
  Company Number: IN-AUROBINDO-AUR-APL-2015-08002

PATIENT
  Age: 41 Year
  Sex: Female

DRUGS (2)
  1. PHENYTOIN TABLETS BP 100MG [Suspect]
     Active Substance: PHENYTOIN
     Indication: PRODUCT USED FOR UNKNOWN INDICATION
     Dosage: 200 DF, UNK
     Route: 065
  2. GLIBENCLAMIDE TABLETS 5 MG IP [Suspect]
     Active Substance: GLYBURIDE
     Indication: PRODUCT USED FOR UNKNOWN INDICATION
     Dosage: 100 DF, UNK
     Route: 065

REACTIONS (19)
  - Respiratory rate decreased [Recovered/Resolved]
  - Overdose [Recovered/Resolved]
  - Stupor [Recovered/Resolved]
  - Bradycardia [Recovered/Resolved]
  - Nystagmus [Recovered/Resolved]
  - Neurological symptom [Recovered/Resolved]
  - Toxicity to various agents [Recovered/Resolved]
  - Cardiotoxicity [None]
  - Intentional overdose [None]
  - Blood pressure decreased [Recovered/Resolved]
  - Sinus bradycardia [Recovered/Resolved]
  - Bradyarrhythmia [Recovered/Resolved]
  - Haemodynamic instability [Recovered/Resolved]
  - Metabolic acidosis [Recovered/Resolved]
  - Hypotension [Recovered/Resolved]
  - Suicide attempt [None]
  - Liver function test abnormal [Recovered/Resolved]
  - Suicidal ideation [Recovered/Resolved]
  - Drug interaction [None]
